FAERS Safety Report 20645361 (Version 1)
Quarter: 2022Q1

REPORT INFORMATION
  Report Type: Report from Study
  Country: AR (occurrence: AR)
  Receive Date: 20220328
  Receipt Date: 20220328
  Transmission Date: 20220423
  Serious: Yes (Other)
  Sender: FDA-Public Use
  Company Number: AR-NOVARTISPH-NVSC2022AR033159

PATIENT
  Sex: Male

DRUGS (3)
  1. XOLAIR [Suspect]
     Active Substance: OMALIZUMAB
     Indication: Asthma
     Dosage: 300 MG, QMO
     Route: 058
     Dates: start: 20130327
  2. XOLAIR [Suspect]
     Active Substance: OMALIZUMAB
     Dosage: UNK
     Route: 058
  3. HYDROCHLOROTHIAZIDE\VALSARTAN [Suspect]
     Active Substance: HYDROCHLOROTHIAZIDE\VALSARTAN
     Indication: Hypertension
     Dosage: UNK (? (80 / 12.5) START DATE:6 YEARS AGO
     Route: 048

REACTIONS (9)
  - Brain neoplasm [Unknown]
  - Intellectual disability [Unknown]
  - Hypertension [Unknown]
  - Stress [Unknown]
  - Anxiety [Unknown]
  - Amnesia [Unknown]
  - Asthenia [Unknown]
  - Blood pressure increased [Unknown]
  - Wrong technique in product usage process [Unknown]
